FAERS Safety Report 11171959 (Version 1)
Quarter: 2015Q2

REPORT INFORMATION
  Report Type: Spontaneous
  Country: US (occurrence: US)
  Receive Date: 20150608
  Receipt Date: 20150608
  Transmission Date: 20150821
  Serious: No
  Sender: FDA-Public Use
  Company Number: US-TARO-2014TAR00077

PATIENT
  Age: 2 Year
  Sex: Male
  Weight: 19.48 kg

DRUGS (1)
  1. CHILDRENS CETIRIZINE HYDROCHLORIDE SUGAR FREE GRAPE [Suspect]
     Active Substance: CETIRIZINE HYDROCHLORIDE
     Indication: EYE ALLERGY
     Dosage: 2.5 ML, 2X/DAY
     Dates: start: 20140613, end: 20140617

REACTIONS (3)
  - Ocular hyperaemia [Not Recovered/Not Resolved]
  - Hypersensitivity [Unknown]
  - Scleral disorder [Not Recovered/Not Resolved]

NARRATIVE: CASE EVENT DATE: 201406
